FAERS Safety Report 8175886-8 (Version None)
Quarter: 2012Q1

REPORT INFORMATION
  Report Type: 
  Country: None (occurrence: None)
  Receive Date: 20120228
  Receipt Date: 20120216
  Transmission Date: 20120608
  Serious: Yes (Hospitalization)
  Sender: FDA-Public Use
  Company Number: 2011309631

PATIENT
  Age: 58 Year
  Sex: Male

DRUGS (10)
  1. ERLOTINIB HYDROCHLORIDE [Concomitant]
  2. DALTEPARIN SODIUM [Suspect]
     Indication: PULMONARY EMBOLISM
     Dosage: 15000 IU, DAILY.
  3. IBUPROFEN [Concomitant]
  4. DALTEPARIN SODIUM [Suspect]
     Indication: LUNG NEOPLASM MALIGNANT
     Dosage: 5000 IU, DAILY, SUBCUTANEOUS
     Route: 058
     Dates: start: 20110805, end: 20110912
  5. AMITRIPTYLINE HCL [Concomitant]
  6. OMEPRAZOLE [Concomitant]
  7. GEMCITABINE [Concomitant]
  8. MORPHINE SULFATE [Concomitant]
  9. MORPHINE [Concomitant]
  10. CARBOPLATIN [Concomitant]

REACTIONS (3)
  - HYPERCALCAEMIA [None]
  - HAEMOGLOBIN DECREASED [None]
  - GASTROINTESTINAL HAEMORRHAGE [None]
